FAERS Safety Report 9207789 (Version 2)
Quarter: 2013Q2

REPORT INFORMATION
  Report Type: Spontaneous
  Country: US (occurrence: US)
  Receive Date: 20130403
  Receipt Date: 20130426
  Transmission Date: 20140414
  Serious: Yes (Disabling)
  Sender: FDA-Public Use
  Company Number: US-GLAXOSMITHKLINE-A1017528A

PATIENT
  Age: 54 Year
  Sex: Male

DRUGS (3)
  1. VOTRIENT [Suspect]
     Indication: RENAL CELL CARCINOMA
     Dosage: 4TAB PER DAY
     Route: 048
  2. ATENOLOL [Concomitant]
  3. CRESTOR [Concomitant]

REACTIONS (6)
  - Aphagia [Unknown]
  - Pharyngeal mass [Unknown]
  - Dysphagia [Unknown]
  - Gastrointestinal sounds abnormal [Unknown]
  - Dysphagia [Unknown]
  - Retching [Unknown]
